FAERS Safety Report 17501256 (Version 1)
Quarter: 2020Q1

REPORT INFORMATION
  Report Type: Spontaneous
  Country: US (occurrence: US)
  Receive Date: 20200304
  Receipt Date: 20200304
  Transmission Date: 20200409
  Serious: Yes (Hospitalization)
  Sender: FDA-Public Use
  Company Number: None

PATIENT
  Age: 37 Year
  Sex: Female
  Weight: 70.5 kg

DRUGS (1)
  1. BLEOMYCIN [Suspect]
     Active Substance: BLEOMYCIN SULFATE
     Indication: HODGKIN^S DISEASE
     Route: 041
     Dates: start: 20200204

REACTIONS (7)
  - Cough [None]
  - Night sweats [None]
  - Rhinorrhoea [None]
  - Hypersensitivity [None]
  - Chills [None]
  - Dyspnoea [None]
  - Oedema [None]

NARRATIVE: CASE EVENT DATE: 20200214
